FAERS Safety Report 26091620 (Version 1)
Quarter: 2025Q4

REPORT INFORMATION
  Report Type: Spontaneous
  Country: EU (occurrence: EU)
  Receive Date: 20251126
  Receipt Date: 20251126
  Transmission Date: 20260117
  Serious: Yes (Other)
  Sender: TEVA
  Company Number: None

PATIENT
  Age: 80 Year
  Sex: Female

DRUGS (5)
  1. BISOPROLOL [Interacting]
     Active Substance: BISOPROLOL
     Indication: Product used for unknown indication
     Dosage: BISOPROLOL (2328A)
     Route: 048
     Dates: start: 202509
  2. AMLODIPINE [Interacting]
     Active Substance: AMLODIPINE BESYLATE
     Indication: Product used for unknown indication
     Dosage: AMLODIPINE (2503A)
     Route: 048
     Dates: start: 202509
  3. DIGOXIN [Interacting]
     Active Substance: DIGOXIN
     Indication: Product used for unknown indication
     Dosage: DIGOXIN (770A)
     Route: 048
     Dates: start: 202509
  4. SPIRONOLACTONE [Interacting]
     Active Substance: SPIRONOLACTONE
     Indication: Product used for unknown indication
     Dosage: SPIRONOLACTONE (326A)
     Route: 048
     Dates: start: 202509
  5. VALSARTAN [Interacting]
     Active Substance: VALSARTAN
     Indication: Product used for unknown indication
     Dosage: VALSARTAN (7423A)
     Route: 048
     Dates: start: 202509

REACTIONS (3)
  - Bradycardia [Unknown]
  - Wrong product administered [Unknown]
  - Product prescribing error [Unknown]

NARRATIVE: CASE EVENT DATE: 20250901
